FAERS Safety Report 14547471 (Version 1)
Quarter: 2018Q1

REPORT INFORMATION
  Report Type: Spontaneous
  Country: JP (occurrence: JP)
  Receive Date: 20180219
  Receipt Date: 20180219
  Transmission Date: 20180509
  Serious: Yes (Life-Threatening, Hospitalization)
  Sender: FDA-Public Use
  Company Number: JP-MYLANLABS-2018M1011657

PATIENT
  Sex: Male

DRUGS (2)
  1. ESCITALOPRAM [Suspect]
     Active Substance: ESCITALOPRAM OXALATE
     Indication: PANIC DISORDER
     Dosage: SINCE 34TH WEEKS OF GESTATION
     Route: 064
  2. ETHYL LOFLAZEPATE [Interacting]
     Active Substance: ETHYL LOFLAZEPATE
     Indication: PANIC DISORDER
     Dosage: SINCE 34TH WEEKS OF GESTATION
     Route: 064

REACTIONS (6)
  - Drug interaction [Recovered/Resolved]
  - Foetal exposure during pregnancy [Recovered/Resolved]
  - Hypopnoea [Recovered/Resolved]
  - Respiratory muscle weakness [Recovered/Resolved]
  - Cyanosis [Recovered/Resolved]
  - Irregular breathing [Recovered/Resolved]
